FAERS Safety Report 10259944 (Version 2)
Quarter: 2014Q3

REPORT INFORMATION
  Report Type: Spontaneous
  Country: US (occurrence: US)
  Receive Date: 20140625
  Receipt Date: 20140709
  Transmission Date: 20150326
  Serious: Yes (Hospitalization)
  Sender: FDA-Public Use
  Company Number: US-ACTELION-A-US2014-100778

PATIENT
  Age: 50 Year
  Sex: Male

DRUGS (5)
  1. VELETRI [Suspect]
     Active Substance: EPOPROSTENOL
     Indication: PULMONARY ARTERIAL HYPERTENSION
     Dosage: 50 NG/KG, PER MIN
     Route: 041
     Dates: start: 20111025
  2. VELETRI [Suspect]
     Active Substance: EPOPROSTENOL
     Dosage: 52 NG/KG, PER MIN
     Route: 041
  3. OPSUMIT [Suspect]
     Active Substance: MACITENTAN
     Indication: PULMONARY ARTERIAL HYPERTENSION
     Dosage: 10 MG, QD
     Route: 048
     Dates: start: 20140221
  4. WARFARIN [Concomitant]
     Active Substance: WARFARIN
  5. ADCIRCA [Concomitant]
     Active Substance: TADALAFIL
     Dosage: 40 MG, UNK
     Dates: start: 201110

REACTIONS (4)
  - Chest pain [Unknown]
  - Gastroenteritis [Unknown]
  - Gastrooesophageal reflux disease [Unknown]
  - Viral infection [Unknown]

NARRATIVE: CASE EVENT DATE: 201406
